FAERS Safety Report 7597398-2 (Version None)
Quarter: 2011Q3

REPORT INFORMATION
  Report Type: 
  Country: None (occurrence: None)
  Receive Date: 20110708
  Receipt Date: 20110704
  Transmission Date: 20111222
  Serious: Yes (Life-Threatening, Hospitalization)
  Sender: FDA-Public Use
  Company Number: BR-B.I. PHARMACEUTICALS,INC./RIDGEFIELD-2011-BR-00639BR

PATIENT
  Age: 69 Year
  Sex: Male

DRUGS (6)
  1. PRADAXA [Suspect]
     Indication: THROMBOSIS PROPHYLAXIS
     Route: 048
     Dates: start: 20110629, end: 20110701
  2. GLYBURIDE [Concomitant]
  3. ENALAPRIL MALEATE [Concomitant]
     Indication: HYPERTENSION
     Route: 048
  4. METFORMIN HCL [Concomitant]
     Indication: DIABETES MELLITUS
     Route: 048
  5. DIPYRONE [Concomitant]
     Route: 042
  6. TRAMADOL HYDROCHLORIDE [Concomitant]
     Indication: PROCEDURAL PAIN
     Route: 042
     Dates: start: 20110628, end: 20110630

REACTIONS (4)
  - HAEMATEMESIS [None]
  - MELAENA [None]
  - SEPSIS [None]
  - HYPOVOLAEMIC SHOCK [None]
